FAERS Safety Report 6417733-8 (Version None)
Quarter: 2009Q4

REPORT INFORMATION
  Report Type: 
  Country: None (occurrence: None)
  Receive Date: 20091026
  Receipt Date: 20091013
  Transmission Date: 20100525
  Serious: Yes (Life-Threatening)
  Sender: FDA-Public Use
  Company Number: ADR40012009

PATIENT
  Age: 45 Year
  Sex: Male

DRUGS (2)
  1. SIMVASTATIN [Suspect]
     Indication: HYPERCHOLESTEROLAEMIA
     Dosage: 20 MG ORAL USE
     Route: 048
     Dates: start: 20080424, end: 20081015
  2. INSULIN [Concomitant]

REACTIONS (1)
  - THROMBOCYTOPENIA [None]
